FAERS Safety Report 8952994 (Version 5)
Quarter: 2014Q3

REPORT INFORMATION
  Report Type: Spontaneous
  Country: US (occurrence: US)
  Receive Date: 20121205
  Receipt Date: 20140702
  Transmission Date: 20150326
  Serious: Yes (Hospitalization, Disabling, Other)
  Sender: FDA-Public Use
  Company Number: US-009507513-2009SP035995

PATIENT
  Sex: Female
  Weight: 103.4 kg

DRUGS (4)
  1. NUVARING [Suspect]
     Active Substance: ETHINYL ESTRADIOL\ETONOGESTREL
     Indication: CONTRACEPTION
     Dosage: UNK
     Route: 067
     Dates: start: 200607, end: 20070126
  2. EXCEDRIN MIGRAINE [Concomitant]
     Active Substance: ACETAMINOPHEN\ASPIRIN\CAFFEINE
     Indication: MIGRAINE
  3. MIRENA [Suspect]
     Active Substance: LEVONORGESTREL
  4. TYLENOL [Concomitant]
     Active Substance: ACETAMINOPHEN
     Indication: HEADACHE

REACTIONS (24)
  - Pulmonary embolism [Unknown]
  - Palpitations [Unknown]
  - Transient ischaemic attack [Unknown]
  - Deep vein thrombosis [Unknown]
  - Tachycardia [Recovered/Resolved]
  - Anxiety [Not Recovered/Not Resolved]
  - Cerebrovascular accident [Not Recovered/Not Resolved]
  - Deep vein thrombosis [Unknown]
  - Left ventricular hypertrophy [Unknown]
  - Hypertension [Unknown]
  - Hypothyroidism [Unknown]
  - Pulmonary embolism [Recovered/Resolved]
  - Pelvic discomfort [Unknown]
  - Dyspnoea [Unknown]
  - Maternal exposure before pregnancy [Unknown]
  - Chest pain [Not Recovered/Not Resolved]
  - Migraine [Unknown]
  - Nausea [Unknown]
  - Cardiomyopathy [Unknown]
  - Dizziness [Unknown]
  - High risk pregnancy [Unknown]
  - Tachycardia [Unknown]
  - Coagulopathy [Not Recovered/Not Resolved]
  - Anaemia [Unknown]

NARRATIVE: CASE EVENT DATE: 2006
